FAERS Safety Report 8727437 (Version 2)
Quarter: 2013Q4

REPORT INFORMATION
  Report Type: Spontaneous
  Country: US (occurrence: US)
  Receive Date: 20120816
  Receipt Date: 20131031
  Transmission Date: 20140711
  Serious: No
  Sender: FDA-Public Use
  Company Number: US-ASTRAZENECA-2012SE56824

PATIENT
  Age: 56 Year
  Sex: Female
  Weight: 79.4 kg

DRUGS (11)
  1. LISINOPRIL [Suspect]
     Indication: BLOOD CHOLESTEROL INCREASED
     Route: 048
     Dates: start: 2011
  2. CRESTOR [Suspect]
     Indication: BLOOD CHOLESTEROL INCREASED
     Route: 048
     Dates: start: 2011
  3. LANTUS [Concomitant]
     Indication: DIABETES MELLITUS
  4. NOVOLOG [Concomitant]
     Indication: DIABETES MELLITUS
  5. BENICAR [Concomitant]
     Indication: HYPERTENSION
  6. MELOXICAM [Concomitant]
  7. ASA [Concomitant]
  8. GLUCOPHAGE [Concomitant]
     Indication: DIABETES MELLITUS
  9. INSULIN [Concomitant]
     Indication: DIABETES MELLITUS
  10. FUROSEMIDE [Concomitant]
     Indication: HYPERTENSION
  11. TRIAZADONE [Concomitant]
     Indication: INSOMNIA

REACTIONS (4)
  - Drug hypersensitivity [Unknown]
  - Cough [Unknown]
  - Blood pressure increased [Unknown]
  - Drug dose omission [Unknown]
